FAERS Safety Report 5816879-2 (Version None)
Quarter: 2008Q3

REPORT INFORMATION
  Report Type: 
  Country: None (occurrence: None)
  Receive Date: 20080721
  Receipt Date: 20080711
  Transmission Date: 20090109
  Serious: Yes (Hospitalization)
  Sender: FDA-Public Use
  Company Number: US-MERCK-0806USA07955

PATIENT
  Age: 60 Year
  Sex: Female

DRUGS (1)
  1. FOSAMAX [Suspect]
     Route: 048
     Dates: start: 20050101, end: 20050101

REACTIONS (11)
  - ANGER [None]
  - ARTHRALGIA [None]
  - ARTHRITIS [None]
  - ASTHENIA [None]
  - BALANCE DISORDER [None]
  - DRUG INEFFECTIVE [None]
  - EMOTIONAL DISTRESS [None]
  - GAIT DISTURBANCE [None]
  - MYALGIA [None]
  - PAIN [None]
  - UPPER LIMB FRACTURE [None]
